FAERS Safety Report 7293095-1 (Version None)
Quarter: 2011Q1

REPORT INFORMATION
  Report Type: 
  Country: None (occurrence: None)
  Receive Date: 20110215
  Receipt Date: 20101213
  Transmission Date: 20110831
  Serious: Yes (Death)
  Sender: FDA-Public Use
  Company Number: AU-ROCHE-754596

PATIENT
  Age: 37 Year
  Sex: Male

DRUGS (6)
  1. TRAMADOL HYDROCHLORIDE [Suspect]
     Route: 065
  2. DIAZEPAM [Suspect]
     Route: 065
  3. NAPROXEN [Suspect]
     Route: 065
  4. CODEINE [Suspect]
     Route: 065
  5. IBUPROFEN [Suspect]
     Route: 065
  6. METHADONE HCL [Suspect]
     Route: 065

REACTIONS (1)
  - TOXICITY TO VARIOUS AGENTS [None]
